FAERS Safety Report 9506766 (Version 1)
Quarter: 2013Q3

REPORT INFORMATION
  Report Type: Spontaneous
  Country: US (occurrence: US)
  Receive Date: 20130909
  Receipt Date: 20130909
  Transmission Date: 20140515
  Serious: Yes (Hospitalization)
  Sender: FDA-Public Use
  Company Number: US-ROCHE-1271011

PATIENT
  Sex: Male

DRUGS (3)
  1. CLONAZEPAM [Suspect]
     Indication: ANXIETY
     Dosage: AS NEEDED
     Route: 048
  2. CLONAZEPAM [Suspect]
     Indication: HYPERTENSION
  3. CLONAZEPAM [Suspect]
     Indication: PANIC ATTACK

REACTIONS (5)
  - Convulsion [Unknown]
  - Syncope [Unknown]
  - Depression [Unknown]
  - Withdrawal syndrome [Unknown]
  - Dizziness [Unknown]
